FAERS Safety Report 20137705 (Version 1)
Quarter: 2021Q4

REPORT INFORMATION
  Report Type: Report from Study
  Country: US (occurrence: US)
  Receive Date: 20211202
  Receipt Date: 20211202
  Transmission Date: 20220303
  Serious: Yes (Other)
  Sender: FDA-Public Use
  Company Number: US-ABBVIE-21K-163-4181640-00

PATIENT
  Age: 58 Year
  Sex: Female

DRUGS (2)
  1. RINVOQ [Suspect]
     Active Substance: UPADACITINIB
     Indication: Product used for unknown indication
     Route: 048
     Dates: start: 202106
  2. RINVOQ [Suspect]
     Active Substance: UPADACITINIB
     Dosage: MISSED 5 DAYS
     Route: 048
     Dates: end: 2021

REACTIONS (1)
  - Renal surgery [Unknown]

NARRATIVE: CASE EVENT DATE: 20211101
